FAERS Safety Report 5809765-5 (Version None)
Quarter: 2008Q3

REPORT INFORMATION
  Report Type: 
  Country: None (occurrence: None)
  Receive Date: 20080708
  Receipt Date: 20070830
  Transmission Date: 20090109
  Serious: Yes (Other)
  Sender: FDA-Public Use
  Company Number: 2007080037

PATIENT
  Age: 60 Year
  Sex: Male

DRUGS (3)
  1. SOMA [Suspect]
     Indication: ILL-DEFINED DISORDER
     Dosage: 10-12 TABLETS PER DAY (350MG)
  2. ALCOHOL [Concomitant]
  3. VALIUM [Concomitant]

REACTIONS (2)
  - DRUG DEPENDENCE [None]
  - DRUG WITHDRAWAL SYNDROME [None]
